FAERS Safety Report 4394907-1 (Version None)
Quarter: 2004Q3

REPORT INFORMATION
  Report Type: 
  Country: None (occurrence: None)
  Receive Date: 20040706
  Receipt Date: 20040623
  Transmission Date: 20050211
  Serious: Yes (Hospitalization)
  Sender: FDA-Public Use
  Company Number: 2004042402

PATIENT
  Age: 35 Year
  Sex: Male

DRUGS (1)
  1. ZITHROMAX [Suspect]
     Indication: TONSILLITIS
     Dosage: 500 MG (250 MG, 1 IN 1 D), ORAL
     Route: 048

REACTIONS (2)
  - DRUG INEFFECTIVE [None]
  - MUSCULOSKELETAL PAIN [None]
